FAERS Safety Report 7253738-5 (Version None)
Quarter: 2011Q1

REPORT INFORMATION
  Report Type: 
  Country: None (occurrence: None)
  Receive Date: 20110129
  Receipt Date: 20100201
  Transmission Date: 20110831
  Serious: No
  Sender: FDA-Public Use
  Company Number: US-ABBOTT-10P-163-0623665-00

PATIENT
  Sex: Female
  Weight: 77.18 kg

DRUGS (2)
  1. HUMIRA [Suspect]
     Indication: ANKYLOSING SPONDYLITIS
     Dates: start: 20070401, end: 20091101
  2. HUMIRA [Suspect]
     Indication: CROHN'S DISEASE
     Dates: start: 20091101

REACTIONS (5)
  - DRUG INEFFECTIVE [None]
  - CROHN'S DISEASE [None]
  - HYPOAESTHESIA [None]
  - INFECTION [None]
  - LYMPHADENOPATHY [None]
